FAERS Safety Report 4346461-8 (Version None)
Quarter: 2004Q2

REPORT INFORMATION
  Report Type: 
  Country: None (occurrence: None)
  Receive Date: 20040426
  Receipt Date: 20030411
  Transmission Date: 20050107
  Serious: Yes (Other)
  Sender: FDA-Public Use
  Company Number: US-BRISTOL-MYERS SQUIBB COMPANY-12239216

PATIENT
  Age: 62 Year
  Sex: Female

DRUGS (4)
  1. CARBOPLATIN [Suspect]
     Indication: OVARIAN CANCER
     Dosage: CYCLE 2: 11-APR-2003  193 MG, LOT #2L60183, EXPIRATION 31-AUG-2005 INITIAL DOSE ON 28-MAR-2003
     Route: 042
     Dates: start: 20030404, end: 20030404
  2. ANZEMET [Concomitant]
     Indication: PREMEDICATION
  3. DECADRON [Concomitant]
     Indication: PREMEDICATION
  4. VASOTEC [Concomitant]

REACTIONS (1)
  - HYPERSENSITIVITY [None]
